FAERS Safety Report 8450314-3 (Version None)
Quarter: 2012Q2

REPORT INFORMATION
  Report Type: 
  Country: None (occurrence: None)
  Receive Date: 20120614
  Receipt Date: 20120614
  Transmission Date: 20120825
  Serious: Yes (Other)
  Sender: FDA-Public Use
  Company Number: None

PATIENT
  Age: 42 Year
  Sex: Male
  Weight: 63.9572 kg

DRUGS (7)
  1. ZYPREXA [Concomitant]
  2. OLANZAPINE [Suspect]
     Indication: ANXIETY
     Dosage: 10 MG, AM + PM, PO
     Route: 048
     Dates: start: 20110901, end: 20120612
  3. OLANZAPINE [Suspect]
     Indication: HALLUCINATIONS, MIXED
     Dosage: 10 MG, AM + PM, PO
     Route: 048
     Dates: start: 20110901, end: 20120612
  4. DEPAKOTE [Suspect]
     Indication: MANIA
     Dosage: 1,500 MG, PM, PO
     Route: 048
     Dates: start: 20110901, end: 20120612
  5. DEPAKOTE [Suspect]
     Indication: AFFECTIVE DISORDER
     Dosage: 1,500 MG, PM, PO
     Route: 048
     Dates: start: 20110901, end: 20120612
  6. DEPAKOTE [Suspect]
     Indication: BIPOLAR DISORDER
     Dosage: 1,500 MG, PM, PO
     Route: 048
     Dates: start: 20110901, end: 20120612
  7. DEPAKOTE [Concomitant]

REACTIONS (3)
  - SOMNOLENCE [None]
  - OEDEMA PERIPHERAL [None]
  - JOINT SWELLING [None]
